FAERS Safety Report 5108660-7 (Version None)
Quarter: 2006Q3

REPORT INFORMATION
  Report Type: 
  Country: None (occurrence: None)
  Receive Date: 20060915
  Receipt Date: 20060911
  Transmission Date: 20061208
  Serious: Yes (Other)
  Sender: FDA-Public Use
  Company Number: GXKR2006GB05638

PATIENT
  Age: 49 Year
  Sex: Male

DRUGS (4)
  1. CIPROFLOXACIN [Suspect]
  2. REQUIP [Suspect]
     Indication: PARKINSON'S DISEASE
     Dosage: 12 MG, QD, ORAL
     Route: 048
  3. APOMORPHINE [Concomitant]
  4. MADOPAR (BENSERAZIDE HYDROCHLORIDE, LEVODOPA) [Concomitant]

REACTIONS (4)
  - ABNORMAL BEHAVIOUR [None]
  - DRUG INTERACTION [None]
  - HALLUCINATION, VISUAL [None]
  - PARANOIA [None]
